FAERS Safety Report 8830097 (Version 1)
Quarter: 2012Q4

REPORT INFORMATION
  Report Type: Spontaneous
  Country: US (occurrence: None)
  Receive Date: 20121005
  Receipt Date: 20121005
  Transmission Date: 20130627
  Serious: Yes (Other)
  Sender: FDA-Public Use
  Company Number: None

PATIENT
  Age: 42 Year
  Sex: Male
  Weight: 83.92 kg

DRUGS (1)
  1. METHYLPHENIDATE ER [Suspect]
     Indication: ADHD
     Dosage: 4/12, 8/2, 8/16
10mg- 2 tabs gm oral^
     Route: 048

REACTIONS (1)
  - Drug ineffective [None]
